FAERS Safety Report 7062428-3 (Version None)
Quarter: 2010Q4

REPORT INFORMATION
  Report Type: 
  Country: None (occurrence: None)
  Receive Date: 20101026
  Receipt Date: 20091027
  Transmission Date: 20110411
  Serious: No
  Sender: FDA-Public Use
  Company Number: US-PFIZER INC-2009289903

PATIENT
  Sex: Female

DRUGS (5)
  1. LIPITOR [Suspect]
     Dosage: UNK
  2. DETROL [Suspect]
     Dosage: UNK
  3. BENICAR [Suspect]
     Dosage: UNK
  4. NEXIUM [Suspect]
     Dosage: UNK
  5. MONTELUKAST SODIUM [Suspect]
     Dosage: UNK

REACTIONS (3)
  - FEELING HOT [None]
  - HYPERHIDROSIS [None]
  - TREMOR [None]
